FAERS Safety Report 8960566 (Version 1)
Quarter: 2012Q4

REPORT INFORMATION
  Report Type: Spontaneous
  Country: US (occurrence: None)
  Receive Date: 20121203
  Receipt Date: 20121203
  Transmission Date: 20130627
  Serious: Yes (Hospitalization)
  Sender: FDA-Public Use
  Company Number: 12AE011

PATIENT
  Age: 6 Year
  Sex: Female

DRUGS (1)
  1. ACETAMINOPHEN [Suspect]
     Indication: HEADACHES
     Dosage: 1, 2 times/day, mouth
     Route: 048

REACTIONS (3)
  - Expired drug administered [None]
  - Abdominal discomfort [None]
  - Pharyngitis streptococcal [None]
